FAERS Safety Report 5779330-7 (Version None)
Quarter: 2008Q2

REPORT INFORMATION
  Report Type: 
  Country: None (occurrence: None)
  Receive Date: 20080619
  Receipt Date: 20080310
  Transmission Date: 20081010
  Serious: Yes (Hospitalization)
  Sender: FDA-Public Use
  Company Number: US-BOEHRINGER INGELHEIM GMBH, GERMANY-2007-BP-16681BP

PATIENT
  Sex: Female
  Weight: 59 kg

DRUGS (11)
  1. MIRAPEX [Suspect]
     Indication: RESTLESS LEGS SYNDROME
     Dates: start: 20011001, end: 20060501
  2. LEXAPRO [Concomitant]
  3. SYNTHROID [Concomitant]
  4. ADVAIR DISKUS 100/50 [Concomitant]
  5. ELESTAT [Concomitant]
     Route: 031
  6. TIZANIDINE HCL [Concomitant]
  7. SPIRIVA [Concomitant]
  8. AVALIDE [Concomitant]
  9. SEREVENT [Concomitant]
  10. NEXIUM [Concomitant]
  11. GABAPENTIN [Concomitant]

REACTIONS (9)
  - ANXIETY [None]
  - DEPRESSION [None]
  - EMOTIONAL DISTRESS [None]
  - FEAR [None]
  - OVERDOSE [None]
  - PAIN [None]
  - PATHOLOGICAL GAMBLING [None]
  - STRESS [None]
  - SUICIDE ATTEMPT [None]
